FAERS Safety Report 7401059-X (Version None)
Quarter: 2011Q2

REPORT INFORMATION
  Report Type: 
  Country: None (occurrence: None)
  Receive Date: 20110407
  Receipt Date: 20110401
  Transmission Date: 20111010
  Serious: Yes (Hospitalization)
  Sender: FDA-Public Use
  Company Number: US-ABBOTT-11P-163-0716129-00

PATIENT
  Sex: Female
  Weight: 79.45 kg

DRUGS (8)
  1. FLONASE [Concomitant]
     Indication: PRODUCT USED FOR UNKNOWN INDICATION
  2. NEURONTIN [Concomitant]
     Indication: RESTLESS LEGS SYNDROME
  3. HUMIRA [Suspect]
     Indication: CROHN'S DISEASE
     Dates: start: 20100501
  4. KLONOPIN [Concomitant]
     Indication: RESTLESS LEGS SYNDROME
  5. APREVO [Concomitant]
     Indication: PRODUCT USED FOR UNKNOWN INDICATION
  6. ALLEGRA [Concomitant]
     Indication: HYPERSENSITIVITY
  7. SPIRONOLACTONE [Concomitant]
     Indication: PRODUCT USED FOR UNKNOWN INDICATION
  8. ULTRACET [Concomitant]
     Indication: PAIN

REACTIONS (1)
  - ANAL FISSURE [None]
